FAERS Safety Report 7380369-9 (Version None)
Quarter: 2011Q1

REPORT INFORMATION
  Report Type: 
  Country: None (occurrence: None)
  Receive Date: 20110329
  Receipt Date: 20110318
  Transmission Date: 20110831
  Serious: Yes (Other)
  Sender: FDA-Public Use
  Company Number: US-JNJFOC-20110308364

PATIENT
  Age: 102 Year
  Sex: Female
  Weight: 54.43 kg

DRUGS (7)
  1. NEXIUM [Concomitant]
     Indication: GASTROOESOPHAGEAL REFLUX DISEASE
     Route: 065
  2. ATENOLOL [Concomitant]
     Indication: HYPERTENSION
     Route: 065
  3. BENADRYL ALLERGY ULTRATAB [Suspect]
     Indication: SLEEP DISORDER THERAPY
     Dosage: AS NEEDED
     Route: 048
  4. TERAZOSIN [Concomitant]
     Indication: HYPERTENSION
     Route: 048
  5. DIOVAN [Concomitant]
     Indication: HYPERTENSION
     Route: 065
  6. BENADRYL ALLERGY ULTRATAB [Suspect]
     Route: 048
  7. DIGOXIN [Concomitant]
     Indication: CARDIAC ASSISTANCE DEVICE USER
     Route: 065

REACTIONS (3)
  - OFF LABEL USE [None]
  - HALLUCINATION [None]
  - EPISTAXIS [None]
